FAERS Safety Report 15221273 (Version 2)
Quarter: 2018Q3

REPORT INFORMATION
  Report Type: Spontaneous
  Country: US (occurrence: US)
  Receive Date: 20180731
  Receipt Date: 20180802
  Transmission Date: 20181010
  Serious: No
  Sender: FDA-Public Use
  Company Number: US-PFIZER INC-2018305353

PATIENT
  Sex: Female

DRUGS (1)
  1. LATANOPROST. [Suspect]
     Active Substance: LATANOPROST
     Dosage: 2 GTT, 1X/DAY[ONE DROP IN EACH EYE EACH NIGHT]

REACTIONS (3)
  - Pigmentation disorder [Unknown]
  - Feeling abnormal [Unknown]
  - Anxiety [Unknown]
